FAERS Safety Report 5850719-0 (Version None)
Quarter: 2008Q3

REPORT INFORMATION
  Report Type: 
  Country: None (occurrence: None)
  Receive Date: 20080820
  Receipt Date: 20080814
  Transmission Date: 20090109
  Serious: Yes (Hospitalization, Other)
  Sender: FDA-Public Use
  Company Number: GB-BRISTOL-MYERS SQUIBB COMPANY-13551171

PATIENT
  Age: 43 Year
  Sex: Male

DRUGS (12)
  1. CYCLOPHOSPHAMIDE [Suspect]
     Indication: BURKITT'S LYMPHOMA
     Route: 041
     Dates: start: 19980101, end: 19980901
  2. METHOTREXATE [Suspect]
     Indication: BURKITT'S LYMPHOMA
     Route: 051
     Dates: start: 19980401, end: 19980901
  3. DOXORUBICIN HCL [Suspect]
     Indication: BURKITT'S LYMPHOMA
     Route: 042
     Dates: start: 19980101, end: 19980901
  4. HYDROCORTISONE 0.05% CREAM [Suspect]
     Indication: BURKITT'S LYMPHOMA
     Route: 037
     Dates: start: 19980401, end: 19980901
  5. VINCRISTINE [Suspect]
     Indication: BURKITT'S LYMPHOMA
     Route: 042
     Dates: start: 19980401, end: 19980901
  6. PREDNISOLONE [Suspect]
     Indication: BURKITT'S LYMPHOMA
     Route: 048
     Dates: start: 19980401, end: 19980901
  7. CYTARABINE [Suspect]
     Indication: BURKITT'S LYMPHOMA
     Route: 037
     Dates: start: 19980401, end: 19980901
  8. RITONAVIR [Suspect]
     Indication: ACQUIRED IMMUNODEFICIENCY SYNDROME
     Route: 048
     Dates: start: 19980101
  9. SAQUINAVIR [Suspect]
     Indication: ACQUIRED IMMUNODEFICIENCY SYNDROME
     Route: 048
     Dates: start: 19980101
  10. SULFAMETHOXAZOLE [Suspect]
     Indication: ANTIFUNGAL PROPHYLAXIS
     Route: 048
     Dates: start: 19961001
  11. TRIMETHOPRIM [Suspect]
     Indication: PNEUMOCYSTIS JIROVECI INFECTION
     Route: 048
     Dates: start: 19961001
  12. CO-TRIMOXAZOLE [Concomitant]
     Indication: ANTIFUNGAL PROPHYLAXIS
     Dates: end: 19980401

REACTIONS (8)
  - BACK PAIN [None]
  - BLOOD CHOLESTEROL INCREASED [None]
  - BLOOD TRIGLYCERIDES INCREASED [None]
  - OSTEONECROSIS [None]
  - OSTEOPOROSIS [None]
  - PAIN IN EXTREMITY [None]
  - SPINAL COMPRESSION FRACTURE [None]
  - SPINAL FRACTURE [None]
